FAERS Safety Report 5814046-X (Version None)
Quarter: 2008Q3

REPORT INFORMATION
  Report Type: 
  Country: None (occurrence: None)
  Receive Date: 20080717
  Receipt Date: 20080711
  Transmission Date: 20090109
  Serious: Yes (Death, Life-Threatening)
  Sender: FDA-Public Use
  Company Number: CA-BOEHRINGER INGELHEIM GMBH, GERMANY-2008-BP-10823RO

PATIENT
  Age: 3 Year
  Sex: Male
  Weight: 17 kg

DRUGS (14)
  1. DEXAMETHASONE [Suspect]
     Indication: PROPHYLAXIS OF NAUSEA AND VOMITING
     Route: 042
  2. ONDANSETRON [Suspect]
     Indication: PROPHYLAXIS OF NAUSEA AND VOMITING
     Route: 042
  3. MORPHINE [Suspect]
     Indication: AGGRESSION
     Route: 042
  4. OMEPRAZOLE [Suspect]
     Indication: GASTROOESOPHAGEAL REFLUX DISEASE
  5. OXYGEN/NITROUS OXIDE [Suspect]
     Indication: INDUCTION OF ANAESTHESIA
     Route: 055
  6. SEVOFLURANE [Suspect]
     Indication: INDUCTION OF ANAESTHESIA
     Route: 055
  7. PROPOFOL [Suspect]
     Indication: INDUCTION OF ANAESTHESIA
     Route: 042
  8. ACETAMINOPHEN [Suspect]
     Indication: ANALGESIA
     Route: 054
  9. RASBURICASE [Concomitant]
     Indication: TUMOUR LYSIS SYNDROME
     Route: 042
  10. RASBURICASE [Concomitant]
     Route: 042
  11. RED BLOOD CELLS [Concomitant]
  12. PLATELETS [Concomitant]
  13. FRESH FROZEN PLASMA [Concomitant]
  14. OXYGEN [Concomitant]
     Indication: BLOOD GASES ABNORMAL

REACTIONS (8)
  - AGGRESSION [None]
  - BLOOD GASES ABNORMAL [None]
  - CARDIO-RESPIRATORY ARREST [None]
  - ENCEPHALOPATHY [None]
  - POOR PERIPHERAL CIRCULATION [None]
  - PRECURSOR B-LYMPHOBLASTIC LYMPHOMA [None]
  - SOMNOLENCE [None]
  - TUMOUR LYSIS SYNDROME [None]
